FAERS Safety Report 18525488 (Version 1)
Quarter: 2020Q4

REPORT INFORMATION
  Report Type: Spontaneous
  Country: US (occurrence: US)
  Receive Date: 20201120
  Receipt Date: 20201120
  Transmission Date: 20210114
  Serious: No
  Sender: FDA-Public Use
  Company Number: US-ALLERGAN-2004619US

PATIENT

DRUGS (1)
  1. TEFLARO [Suspect]
     Active Substance: CEFTAROLINE FOSAMIL
     Indication: INFECTION
     Dosage: UNK

REACTIONS (3)
  - Product reconstitution quality issue [Unknown]
  - Product storage error [Unknown]
  - Wrong technique in product usage process [Unknown]
